FAERS Safety Report 18056532 (Version 1)
Quarter: 2020Q3

REPORT INFORMATION
  Report Type: Spontaneous
  Country: GB (occurrence: GB)
  Receive Date: 20200722
  Receipt Date: 20200722
  Transmission Date: 20201103
  Serious: Yes (Life-Threatening)
  Sender: FDA-Public Use
  Company Number: GB-ELI_LILLY_AND_COMPANY-GB202007007392

PATIENT
  Age: 27 Year
  Sex: Male
  Weight: 70 kg

DRUGS (35)
  1. HALOPERIDOL. [Suspect]
     Active Substance: HALOPERIDOL
     Indication: DELIRIUM
     Dosage: 2?4 HOURLY
     Route: 042
     Dates: start: 20200624
  2. CIPROFLOXACIN. [Suspect]
     Active Substance: CIPROFLOXACIN
     Indication: ABDOMINAL SEPSIS
     Route: 042
     Dates: start: 20200615, end: 20200624
  3. RIFAXIMIN. [Concomitant]
     Active Substance: RIFAXIMIN
  4. MACROGOL [Concomitant]
     Active Substance: POLYETHYLENE GLYCOLS
  5. THIAMINE. [Concomitant]
     Active Substance: THIAMINE
  6. TERLIPRESSIN [Concomitant]
     Active Substance: TERLIPRESSIN
  7. OLANZAPINE. [Suspect]
     Active Substance: OLANZAPINE
     Indication: DELIRIUM
     Dosage: AT NIGHT
     Route: 048
     Dates: start: 20200623
  8. TINZAPARIN [Concomitant]
     Active Substance: TINZAPARIN
  9. POLYFUSOR PHOSPHAT [Concomitant]
     Dosage: (SEVERAL STAT DOSES)
  10. PHYTOMENADIONE [Concomitant]
     Active Substance: PHYTONADIONE
     Dosage: SEVERAL STAT DOSES
     Route: 042
  11. NOREPINEPHRINE. [Concomitant]
     Active Substance: NOREPINEPHRINE
  12. FUROSEMIDE. [Concomitant]
     Active Substance: FUROSEMIDE
     Dosage: VARIOUS STAT DOSES
  13. FLUCONAZOLE. [Concomitant]
     Active Substance: FLUCONAZOLE
     Route: 042
  14. MAGNESIUM SULFATE. [Concomitant]
     Active Substance: MAGNESIUM SULFATE
     Route: 042
  15. CEFTRIAXONE. [Concomitant]
     Active Substance: CEFTRIAXONE
  16. PHENYTOIN. [Concomitant]
     Active Substance: PHENYTOIN
     Dosage: LOADING DOSE
     Dates: start: 20200622
  17. LORAZEPAM. [Concomitant]
     Active Substance: LORAZEPAM
     Dosage: 1?2MG
  18. ALFENTANIL HYDROCHLORIDE. [Concomitant]
     Active Substance: ALFENTANIL HYDROCHLORIDE
  19. CREON [Concomitant]
     Active Substance: PANCRELIPASE AMYLASE\PANCRELIPASE LIPASE\PANCRELIPASE PROTEASE
     Dosage: 2 WITH MEALS AND 1 WITH SNACKS.
  20. LACTULOSE. [Concomitant]
     Active Substance: LACTULOSE
  21. CASPOFUNGIN [Concomitant]
     Active Substance: CASPOFUNGIN
  22. OMEPRAZOLE. [Concomitant]
     Active Substance: OMEPRAZOLE
  23. LINEZOLID. [Concomitant]
     Active Substance: LINEZOLID
  24. PANCREX [Concomitant]
     Dosage: POWDER (AS AN ALTERNATIVE TO CREON DUE TO SWALLOWING PROBLEMS)
  25. FERROUS SULFATE. [Concomitant]
     Active Substance: FERROUS SULFATE
  26. MIRTAZAPINE. [Concomitant]
     Active Substance: MIRTAZAPINE
     Dosage: AT NIGHT
  27. DEXMEDETOMIDINE. [Concomitant]
     Active Substance: DEXMEDETOMIDINE
  28. PARACETAMOL [Concomitant]
     Active Substance: ACETAMINOPHEN
     Dosage: INTRAVENOUS AND ORAL
  29. ACETYLCYSTEINE. [Concomitant]
     Active Substance: ACETYLCYSTEINE
  30. MAGNASPARTATE [Concomitant]
  31. MEROPENEM. [Concomitant]
     Active Substance: MEROPENEM
  32. PROPOFOL. [Concomitant]
     Active Substance: PROPOFOL
  33. PABRINEX HIGH POTENCY [Concomitant]
  34. METRONIDAZOLE. [Concomitant]
     Active Substance: METRONIDAZOLE
  35. FOLIC ACID. [Concomitant]
     Active Substance: FOLIC ACID

REACTIONS (3)
  - Blood potassium decreased [Unknown]
  - Electrocardiogram QT prolonged [Recovering/Resolving]
  - Off label use [Unknown]

NARRATIVE: CASE EVENT DATE: 20200624
